FAERS Safety Report 4556426-9 (Version None)
Quarter: 2005Q1

REPORT INFORMATION
  Report Type: 
  Country: None (occurrence: None)
  Receive Date: 20050114
  Receipt Date: 20050104
  Transmission Date: 20050727
  Serious: Yes (Hospitalization, Other)
  Sender: FDA-Public Use
  Company Number: 2005004667

PATIENT
  Age: 72 Year
  Sex: Female
  Weight: 78.0187 kg

DRUGS (7)
  1. NORVASC [Suspect]
     Indication: HYPERTENSION
     Dosage: 10 MG (10 MG, 1IN 1 D), ORAL
     Route: 048
     Dates: end: 20041201
  2. BEXTRA [Suspect]
     Indication: BACK PAIN
     Dosage: 20 MG (1 D)
     Dates: start: 20041123, end: 20041222
  3. ROFECOXIB [Concomitant]
  4. ROSUVASTATIN (ROSUVASTATIN) [Concomitant]
  5. LOSARTAN POTASSIUM [Concomitant]
  6. RALOXIFEN HYDROCHLORIDE (RALOXIFEN HYDROCHLORIDE) [Concomitant]
  7. PIOGLITAZONE HCL [Concomitant]

REACTIONS (3)
  - BACK PAIN [None]
  - CARDIAC DISORDER [None]
  - MYOCARDIAL INFARCTION [None]
